FAERS Safety Report 5761006-3 (Version None)
Quarter: 2008Q2

REPORT INFORMATION
  Report Type: 
  Country: None (occurrence: None)
  Receive Date: 20080606
  Receipt Date: 20070413
  Transmission Date: 20081010
  Serious: No
  Sender: FDA-Public Use
  Company Number: US-ASTRAZENECA-2007UW07338

PATIENT
  Age: 45 Year
  Sex: Female
  Weight: 54.4 kg

DRUGS (1)
  1. PRILOSEC [Suspect]
     Indication: GASTROOESOPHAGEAL REFLUX DISEASE
     Route: 048
     Dates: start: 20070409

REACTIONS (3)
  - ABDOMINAL DISTENSION [None]
  - HEADACHE [None]
  - SALIVARY HYPERSECRETION [None]
